FAERS Safety Report 6794157-5 (Version None)
Quarter: 2010Q2

REPORT INFORMATION
  Report Type: 
  Country: None (occurrence: None)
  Receive Date: 20100624
  Receipt Date: 20071010
  Transmission Date: 20101027
  Serious: No
  Sender: FDA-Public Use
  Company Number: US-PFIZER INC-ENC200700177

PATIENT
  Sex: Female

DRUGS (18)
  1. ARGATROBAN [Suspect]
     Indication: HEPARIN-INDUCED THROMBOCYTOPENIA
     Route: 042
     Dates: start: 20070928, end: 20070101
  2. ARGATROBAN [Suspect]
     Dosage: 12 TO 13 MCG/KG/MIN,FREQUENCY:  UNK
     Route: 042
     Dates: start: 20071002, end: 20071001
  3. ARGATROBAN [Suspect]
     Dosage: FREQUENCY:  QD
     Route: 042
     Dates: start: 20071001, end: 20071001
  4. ARGATROBAN [Suspect]
     Dosage: FREQUENCY:  QD
     Route: 042
     Dates: start: 20071001, end: 20071001
  5. ARGATROBAN [Suspect]
     Dosage: FREQUENCY:  QD
     Route: 042
     Dates: start: 20071001, end: 20071001
  6. ARGATROBAN [Suspect]
     Dosage: FREQUENCY:  QD
     Route: 042
     Dates: start: 20071001, end: 20071001
  7. ARGATROBAN [Suspect]
     Dosage: FREQUENCY:  QD
     Route: 042
     Dates: start: 20071001, end: 20071001
  8. ARGATROBAN [Suspect]
     Dosage: FREQUENCY:  QD
     Route: 042
     Dates: start: 20071003, end: 20071001
  9. ARGATROBAN [Suspect]
     Dosage: FREQUENCY:  QD
     Route: 042
     Dates: start: 20071006, end: 20071006
  10. ARGATROBAN [Suspect]
     Dosage: FREQUENCY:  QD
     Route: 042
     Dates: start: 20071007, end: 20071007
  11. ARGATROBAN [Suspect]
     Dosage: FREQUENCY:  QD
     Route: 042
     Dates: start: 20071008, end: 20071008
  12. IRON [Concomitant]
  13. DOCUSATE SODIUM [Concomitant]
  14. ATENOLOL [Concomitant]
  15. CALCIUM CARBONATE [Concomitant]
  16. CEFAZOLIN SODIUM [Concomitant]
  17. WARFARIN SODIUM [Concomitant]
     Dates: start: 20071003, end: 20071008
  18. HEPARIN SODIUM [Concomitant]
     Dates: start: 20070928

REACTIONS (2)
  - COAGULATION TIME PROLONGED [None]
  - INCORRECT DOSE ADMINISTERED [None]
